FAERS Safety Report 17580637 (Version 1)
Quarter: 2020Q1

REPORT INFORMATION
  Report Type: Spontaneous
  Country: DK (occurrence: DK)
  Receive Date: 20200325
  Receipt Date: 20200325
  Transmission Date: 20200409
  Serious: Yes (Hospitalization)
  Sender: FDA-Public Use
  Company Number: DK-TEVA-2020-DK-1208915

PATIENT
  Age: 71 Year
  Sex: Male

DRUGS (3)
  1. SILDENAFIL 1A FARMA [Concomitant]
     Indication: ERECTILE DYSFUNCTION
     Dosage: STRENGTH: 100 MG, DOSAGE: 0.5-1 TABLET AS NEEDED 1 HOUR BEFORE EFFECT IS DESIRED
     Route: 048
     Dates: start: 201605
  2. CYANOCOBALAMIN. [Concomitant]
     Active Substance: CYANOCOBALAMIN
     Indication: VITAMIN B12 DEFICIENCY
     Dosage: 1 MG
     Route: 048
     Dates: start: 201811
  3. LOSARTAN OG HYDROCHLORTHIAZID [Suspect]
     Active Substance: HYDROCHLOROTHIAZIDE\LOSARTAN
     Indication: HYPERTENSION
     Dosage: STRENGTH: 50 + 12.5 MG, 100 + 25 MG,?DOSAGE: VARIATION FROM 50 + 12.5 MG 2XDGL, AND 100 + 25 MG 1XDG
     Route: 048
     Dates: start: 20191209, end: 20200228

REACTIONS (2)
  - Hypokalaemia [Recovering/Resolving]
  - Hyponatraemia [Recovering/Resolving]

NARRATIVE: CASE EVENT DATE: 202002
